FAERS Safety Report 14002685 (Version 3)
Quarter: 2018Q1

REPORT INFORMATION
  Report Type: Spontaneous
  Country: US (occurrence: US)
  Receive Date: 20170922
  Receipt Date: 20180129
  Transmission Date: 20180508
  Serious: Yes (Death, Hospitalization)
  Sender: FDA-Public Use
  Company Number: US-JNJFOC-20170822656

PATIENT
  Age: 68 Year
  Sex: Female

DRUGS (6)
  1. XARELTO [Suspect]
     Active Substance: RIVAROXABAN
     Indication: DEEP VEIN THROMBOSIS
     Dosage: 15 MG TWICE PER DAY FOR 3 WEEKS THEN 20 MG DAILY
     Route: 048
     Dates: start: 20150119, end: 201504
  2. XARELTO [Suspect]
     Active Substance: RIVAROXABAN
     Indication: THROMBOSIS IN DEVICE
     Dosage: 15 MG TWICE PER DAY FOR 3 WEEKS THEN 20 MG DAILY
     Route: 048
     Dates: start: 20150119, end: 201504
  3. XARELTO [Suspect]
     Active Substance: RIVAROXABAN
     Indication: DEEP VEIN THROMBOSIS
     Route: 048
     Dates: start: 20140215, end: 201408
  4. XARELTO [Suspect]
     Active Substance: RIVAROXABAN
     Indication: DEEP VEIN THROMBOSIS
     Dosage: 15 MG TWICE PER DAY FOR 3??WEEKS THEN 20 MG DAILY
     Route: 048
     Dates: start: 20150831, end: 20151006
  5. XARELTO [Suspect]
     Active Substance: RIVAROXABAN
     Indication: THROMBOSIS IN DEVICE
     Route: 048
     Dates: start: 20140215, end: 201408
  6. XARELTO [Suspect]
     Active Substance: RIVAROXABAN
     Indication: THROMBOSIS IN DEVICE
     Dosage: 15 MG TWICE PER DAY FOR 3??WEEKS THEN 20 MG DAILY
     Route: 048
     Dates: start: 20150831, end: 20151006

REACTIONS (6)
  - Haematuria [Recovering/Resolving]
  - Occult blood positive [Recovering/Resolving]
  - Vomiting [Unknown]
  - Nausea [Unknown]
  - Splenic haematoma [Recovering/Resolving]
  - Deep vein thrombosis [Unknown]

NARRATIVE: CASE EVENT DATE: 201504
